FAERS Safety Report 5468959-1 (Version None)
Quarter: 2007Q3

REPORT INFORMATION
  Report Type: 
  Country: None (occurrence: None)
  Receive Date: 20070820
  Receipt Date: 20070621
  Transmission Date: 20080115
  Serious: No
  Sender: FDA-Public Use
  Company Number: WAES 0706USA04289

PATIENT
  Age: 65 Year
  Sex: Male
  Weight: 145.151 kg

DRUGS (10)
  1. JANUVIA [Suspect]
     Indication: TYPE 2 DIABETES MELLITUS
     Dosage: 100 MG/DAILY/PO
     Route: 048
     Dates: start: 20061201, end: 20070525
  2. AUGEMENTIN [Concomitant]
  3. AVELOX [Concomitant]
  4. BIDEX [Concomitant]
  5. BYETTA [Concomitant]
  6. COREG [Concomitant]
  7. LORTAB [Concomitant]
  8. MEDROL [Concomitant]
  9. OMNICEF [Concomitant]
  10. TRICOR [Concomitant]

REACTIONS (2)
  - ARTHRALGIA [None]
  - MYALGIA [None]
